FAERS Safety Report 5079917-3 (Version None)
Quarter: 2006Q3

REPORT INFORMATION
  Report Type: 
  Country: None (occurrence: None)
  Receive Date: 20060809
  Receipt Date: 20060801
  Transmission Date: 20061208
  Serious: Yes (Disabling)
  Sender: FDA-Public Use
  Company Number: 2006JP002212

PATIENT
  Age: 87 Year
  Sex: Male

DRUGS (6)
  1. VESICARE [Suspect]
     Indication: MICTURITION URGENCY
     Dosage: 5 MG, UID/QD, ORAL
     Route: 048
     Dates: start: 20060617, end: 20060619
  2. SEPAMIT [Concomitant]
  3. CARVEDILOL [Concomitant]
  4. DAONIL [Concomitant]
  5. ALOSENN (TARAXACUM OFFICINALE, ACHILLEA MILLEFOLIUM, SENNA ALEXANDRINA [Concomitant]
  6. 8-HOUR BAYER [Concomitant]

REACTIONS (1)
  - DYSURIA [None]
